FAERS Safety Report 9929517 (Version 2)
Quarter: 2014Q2

REPORT INFORMATION
  Report Type: Spontaneous
  Country: TW (occurrence: TW)
  Receive Date: 20140227
  Receipt Date: 20140617
  Transmission Date: 20141212
  Serious: Yes (Hospitalization)
  Sender: FDA-Public Use
  Company Number: TW-GLAXOSMITHKLINE-B0972810A

PATIENT
  Age: 66 Year
  Sex: Male
  Weight: 79.4 kg

DRUGS (1)
  1. REVOLADE [Suspect]
     Indication: IMMUNE THROMBOCYTOPENIC PURPURA
     Route: 048
     Dates: start: 20130621

REACTIONS (5)
  - Pneumonia [Unknown]
  - Wound [Recovered/Resolved]
  - Cough [Recovered/Resolved]
  - Pneumonitis [Recovered/Resolved]
  - Rhinorrhoea [Recovered/Resolved]
